FAERS Safety Report 12355730 (Version 1)
Quarter: 2016Q2

REPORT INFORMATION
  Report Type: Spontaneous
  Country: US (occurrence: None)
  Receive Date: 20160510
  Receipt Date: 20160510
  Transmission Date: 20160815
  Serious: Yes (Life-Threatening, Hospitalization, Disabling, Other)
  Sender: FDA-Public Use
  Company Number: None

PATIENT
  Age: 51 Year
  Sex: Male

DRUGS (4)
  1. VITAMINS [Concomitant]
     Active Substance: VITAMINS
  2. MILK THISTLE [Concomitant]
     Active Substance: MILK THISTLE
  3. CYMBALTA [Suspect]
     Active Substance: DULOXETINE HYDROCHLORIDE
     Indication: DEPRESSION
     Dosage: 2 P ILLS 2 IN THE MORNING MOUTH
     Route: 048
     Dates: start: 2014, end: 201412
  4. CYMBALTA [Suspect]
     Active Substance: DULOXETINE HYDROCHLORIDE
     Indication: GENERALISED ANXIETY DISORDER
     Dosage: 2 P ILLS 2 IN THE MORNING MOUTH
     Route: 048
     Dates: start: 2014, end: 201412

REACTIONS (3)
  - Aggression [None]
  - Hallucination, visual [None]
  - Insomnia [None]

NARRATIVE: CASE EVENT DATE: 2012
